FAERS Safety Report 23137618 (Version 1)
Quarter: 2023Q4

REPORT INFORMATION
  Report Type: Spontaneous
  Country: US (occurrence: US)
  Receive Date: 20231102
  Receipt Date: 20231102
  Transmission Date: 20240110
  Serious: Yes (Other)
  Sender: FDA-Public Use
  Company Number: US-PURDUE PHARMA-USA-2023-0304722

PATIENT
  Sex: Female

DRUGS (6)
  1. OXYCODONE HYDROCHLORIDE [Suspect]
     Active Substance: OXYCODONE HYDROCHLORIDE
     Indication: Pain
     Dosage: 3 TABLET
     Route: 048
  2. OXYCODONE HYDROCHLORIDE [Suspect]
     Active Substance: OXYCODONE HYDROCHLORIDE
     Indication: Arthralgia
  3. OXYCODONE HYDROCHLORIDE [Suspect]
     Active Substance: OXYCODONE HYDROCHLORIDE
     Indication: Neck pain
  4. MS CONTIN [Suspect]
     Active Substance: MORPHINE SULFATE
     Indication: Pain
     Dosage: 15 MILLIGRAM, NOCTE
     Route: 048
     Dates: start: 20160531, end: 20160628
  5. MS CONTIN [Suspect]
     Active Substance: MORPHINE SULFATE
     Indication: Arthralgia
  6. MS CONTIN [Suspect]
     Active Substance: MORPHINE SULFATE
     Indication: Neck pain

REACTIONS (3)
  - Urinary retention [Unknown]
  - Pain in extremity [Unknown]
  - Drug ineffective [Unknown]
